FAERS Safety Report 10488793 (Version 1)
Quarter: 2014Q4

REPORT INFORMATION
  Report Type: Spontaneous
  Country: US (occurrence: None)
  Receive Date: 20141001
  Receipt Date: 20141001
  Transmission Date: 20150528
  Serious: Yes (Hospitalization)
  Sender: FDA-Public Use
  Company Number: None

PATIENT
  Age: 62 Year
  Sex: Male
  Weight: 97.7 kg

DRUGS (2)
  1. VARENICLINE [Suspect]
     Active Substance: VARENICLINE
     Indication: HYPERTENSION
     Route: 048
     Dates: start: 20140708, end: 20140719
  2. VARENICLINE [Suspect]
     Active Substance: VARENICLINE
     Indication: SMOKING CESSATION THERAPY
     Route: 048
     Dates: start: 20140708, end: 20140719

REACTIONS (3)
  - Dyspnoea [None]
  - Dysphagia [None]
  - Angioedema [None]

NARRATIVE: CASE EVENT DATE: 20140719
